FAERS Safety Report 8139209-2 (Version None)
Quarter: 2012Q1

REPORT INFORMATION
  Report Type: 
  Country: None (occurrence: None)
  Receive Date: 20120215
  Receipt Date: 20120213
  Transmission Date: 20120608
  Serious: Yes (Life-Threatening)
  Sender: FDA-Public Use
  Company Number: US-BAYER-2012-014754

PATIENT
  Sex: Female

DRUGS (3)
  1. DROSPIRENONE AND ETHINYL ESTRADIOL [Suspect]
  2. YASMIN [Suspect]
  3. YAZ [Suspect]

REACTIONS (4)
  - ANHEDONIA [None]
  - GALLBLADDER DISORDER [None]
  - ANXIETY [None]
  - PAIN [None]
